FAERS Safety Report 22620453 (Version 3)
Quarter: 2024Q1

REPORT INFORMATION
  Report Type: Report from Study
  Country: DE (occurrence: DE)
  Receive Date: 20230620
  Receipt Date: 20240108
  Transmission Date: 20240409
  Serious: Yes (Hospitalization, Other)
  Sender: FDA-Public Use
  Company Number: DE-002147023-NVSC2023DE071268

PATIENT
  Age: 33 Year
  Sex: Female
  Weight: 70.4 kg

DRUGS (5)
  1. PREDNISOLONE [Suspect]
     Active Substance: PREDNISOLONE
     Indication: Tumour necrosis factor receptor-associated periodic syndrome
     Dosage: 150 MILLIGRAM, PRN (ON DEMAND)
     Route: 048
     Dates: start: 201804
  2. IBUPROFEN [Suspect]
     Active Substance: IBUPROFEN
     Indication: Tumour necrosis factor receptor-associated periodic syndrome
     Dosage: 2400 MILLIGRAM, QD, 800 MG, TID
     Route: 048
     Dates: start: 201804
  3. ILARIS [Suspect]
     Active Substance: CANAKINUMAB
     Indication: Tumour necrosis factor receptor-associated periodic syndrome
     Dosage: 150 MILLIGRAM, 150 MG (EVERY 10 TO 12 DAYS)
     Route: 058
     Dates: start: 20190224
  4. ILARIS [Suspect]
     Active Substance: CANAKINUMAB
     Dosage: 150 MILLIGRAM, 150 MG (EVERY 10 TO 12 DAYS)
     Route: 058
     Dates: start: 2018
  5. ILARIS [Suspect]
     Active Substance: CANAKINUMAB
     Dosage: UNK
     Route: 065
     Dates: start: 20220905

REACTIONS (2)
  - Nephrocalcinosis [Recovered/Resolved]
  - Inappropriate schedule of product administration [Not Recovered/Not Resolved]

NARRATIVE: CASE EVENT DATE: 20180401
